FAERS Safety Report 5191368-X (Version None)
Quarter: 2006Q4

REPORT INFORMATION
  Report Type: 
  Country: None (occurrence: None)
  Receive Date: 20061220
  Receipt Date: 20061220
  Transmission Date: 20070319
  Serious: Yes (Hospitalization)
  Sender: FDA-Public Use
  Company Number: None

PATIENT
  Sex: Female
  Weight: 66.8 kg

DRUGS (6)
  1. CYCLOPHOSPHAMIDE [Suspect]
     Dosage: 3200 MG
     Dates: end: 20061129
  2. DOXORUBICIN HYDROCHLORIDE [Suspect]
     Dosage: 80 MG
     Dates: end: 20061129
  3. LEUCOVORIN CALCIUM [Suspect]
     Dosage: 960 MG
     Dates: end: 20061211
  4. METHOTREXATE [Suspect]
     Dosage: 480 MG
     Dates: end: 20061129
  5. RITUXIMAB (MOAB C2BI ANTI CD20, CHIMERIC) [Suspect]
     Dosage: 600 MG
     Dates: end: 20061127
  6. VINCRISTINE SULFATE [Suspect]
     Dosage: 2 MG
     Dates: end: 20061129

REACTIONS (13)
  - ATELECTASIS [None]
  - ATRIAL FIBRILLATION [None]
  - BACILLUS INFECTION [None]
  - BACTERIA BODY FLUID IDENTIFIED [None]
  - BACTERIAL INFECTION [None]
  - CULTURE POSITIVE [None]
  - ENTEROCOCCAL INFECTION [None]
  - FISTULA [None]
  - GASTROINTESTINAL INFLAMMATION [None]
  - LUNG INFILTRATION [None]
  - PERIDIVERTICULAR ABSCESS [None]
  - PLEURAL EFFUSION [None]
  - SMALL INTESTINAL OBSTRUCTION [None]
